FAERS Safety Report 16568419 (Version 2)
Quarter: 2019Q3

REPORT INFORMATION
  Report Type: Spontaneous
  Country: US (occurrence: US)
  Receive Date: 20190712
  Receipt Date: 20190802
  Transmission Date: 20191004
  Serious: Yes (Other)
  Sender: FDA-Public Use
  Company Number: US-PFIZER INC-2019296069

PATIENT
  Age: 51 Year
  Sex: Female
  Weight: 52.62 kg

DRUGS (4)
  1. PROTONIX [Suspect]
     Active Substance: PANTOPRAZOLE SODIUM
     Indication: GASTROOESOPHAGEAL REFLUX DISEASE
     Dosage: 40 MG, 1X/DAY
     Route: 048
  2. XANAX [Concomitant]
     Active Substance: ALPRAZOLAM
     Indication: PANIC DISORDER
     Dosage: 1 MG TO 2 MG A DAY DEPENDING ON THE YEAR
  3. PROTONIX [Suspect]
     Active Substance: PANTOPRAZOLE SODIUM
     Dosage: 40 MG, 1X/DAY
     Route: 048
  4. PROTONIX [Suspect]
     Active Substance: PANTOPRAZOLE SODIUM
     Dosage: 40 MG, 2X/DAY (ONE IN THE MORNING AND ONE IN THE EVENING) FOR ABOUT 8 WEEKS
     Route: 048

REACTIONS (6)
  - Oesophageal hypomotility [Unknown]
  - Drug ineffective [Unknown]
  - Movement disorder [Unknown]
  - Serum ferritin decreased [Unknown]
  - Malaise [Unknown]
  - Iron deficiency [Unknown]
